FAERS Safety Report 20878175 (Version 5)
Quarter: 2023Q2

REPORT INFORMATION
  Report Type: Spontaneous
  Country: US (occurrence: US)
  Receive Date: 20220526
  Receipt Date: 20230404
  Transmission Date: 20230722
  Serious: No
  Sender: FDA-Public Use
  Company Number: US-KARYOPHARM-2022KPT000528

PATIENT

DRUGS (2)
  1. XPOVIO [Suspect]
     Active Substance: SELINEXOR
     Indication: Plasma cell myeloma
     Dosage: 60 MG, WEEKLY
     Route: 048
     Dates: start: 202203
  2. POMALYST [Concomitant]
     Active Substance: POMALIDOMIDE

REACTIONS (9)
  - Muscle spasms [Unknown]
  - Dysgeusia [Unknown]
  - Laboratory test abnormal [Unknown]
  - Abdominal discomfort [Unknown]
  - Sinusitis [Unknown]
  - Cough [Unknown]
  - Nasopharyngitis [Unknown]
  - Constipation [Unknown]
  - Nausea [Unknown]

NARRATIVE: CASE EVENT DATE: 20220101
